FAERS Safety Report 22333230 (Version 2)
Quarter: 2023Q2

REPORT INFORMATION
  Report Type: Spontaneous
  Country: JP (occurrence: JP)
  Receive Date: 20230517
  Receipt Date: 20230526
  Transmission Date: 20230722
  Serious: Yes (Death, Hospitalization, Other)
  Sender: FDA-Public Use
  Company Number: JP-UCBJ-CD202305462UCBPHAPROD

PATIENT
  Age: 9 Decade
  Sex: Male

DRUGS (1)
  1. CIMZIA [Suspect]
     Active Substance: CERTOLIZUMAB PEGOL
     Indication: Rheumatoid arthritis
     Dosage: UNK
     Route: 058

REACTIONS (4)
  - Lung disorder [Fatal]
  - Nephropathy [Fatal]
  - Cardiac failure [Unknown]
  - Cytopenia [Fatal]

NARRATIVE: CASE EVENT DATE: 20221001
